FAERS Safety Report 8267569-0 (Version None)
Quarter: 2012Q2

REPORT INFORMATION
  Report Type: 
  Country: None (occurrence: None)
  Receive Date: 20120409
  Receipt Date: 20120402
  Transmission Date: 20120825
  Serious: Yes (Hospitalization)
  Sender: FDA-Public Use
  Company Number: PHHY2012IT023784

PATIENT
  Sex: Female

DRUGS (8)
  1. VALSARTAN  AND HYDROCHLOROTHIAZIDE [Suspect]
     Indication: HYPERTENSION
     Dosage: 1 DF PER DAY
     Route: 048
     Dates: start: 20100222, end: 20120222
  2. NORVASC [Concomitant]
     Dosage: 5 MG, UNK
     Route: 048
  3. ACETYLCYSTEINE [Concomitant]
     Indication: COUGH
     Dosage: 600 MG, UNK
     Dates: start: 20120220, end: 20120222
  4. TRIMETON [Concomitant]
     Dosage: 10 MG, UNK
     Route: 030
     Dates: start: 20120222, end: 20120222
  5. OMEPRAZOLE [Concomitant]
     Dosage: 20 MG, UNK
     Route: 048
  6. AMOXICILLIN AND CLAVULANATE POTASSIUM [Concomitant]
     Indication: OROPHARYNGEAL PAIN
     Dosage: 2 G, UNK
     Route: 048
     Dates: start: 20120220, end: 20120221
  7. ZOLOFT [Concomitant]
     Dosage: 50 MG, UNK
     Route: 048
  8. SOLU-MEDROL [Concomitant]
     Dosage: 125 MG, UNK
     Route: 042
     Dates: start: 20120222, end: 20120222

REACTIONS (3)
  - SOPOR [None]
  - BLOOD CREATININE INCREASED [None]
  - ASTHENIA [None]
